FAERS Safety Report 25295956 (Version 2)
Quarter: 2025Q2

REPORT INFORMATION
  Report Type: Spontaneous
  Country: DE (occurrence: DE)
  Receive Date: 20250511
  Receipt Date: 20250619
  Transmission Date: 20250716
  Serious: Yes (Hospitalization, Other)
  Sender: AUROBINDO
  Company Number: DE-LESVI-2025001772

PATIENT
  Age: 52 Year
  Sex: Male

DRUGS (4)
  1. LEVETIRACETAM [Suspect]
     Active Substance: LEVETIRACETAM
     Indication: Generalised tonic-clonic seizure
     Dosage: 750 MILLIGRAM, EVERY OTHER DAY
     Route: 065
     Dates: start: 2016, end: 2017
  2. LAMOTRIGINE [Suspect]
     Active Substance: LAMOTRIGINE
     Indication: Status epilepticus
     Route: 065
     Dates: start: 2017, end: 2019
  3. LAMOTRIGINE [Suspect]
     Active Substance: LAMOTRIGINE
     Dosage: 50 MILLIGRAM, EVERY OTHER DAY
     Route: 065
     Dates: start: 2019, end: 2019
  4. LAMOTRIGINE [Suspect]
     Active Substance: LAMOTRIGINE
     Indication: Status epilepticus
     Dosage: 100 MILLIGRAM, EVERY OTHER DAY STARTING ONE WEEK LATER
     Route: 065

REACTIONS (2)
  - Cerebral ischaemia [Unknown]
  - Irritability [Unknown]

NARRATIVE: CASE EVENT DATE: 20191101
